FAERS Safety Report 5838792-7 (Version None)
Quarter: 2008Q3

REPORT INFORMATION
  Report Type: 
  Country: None (occurrence: None)
  Receive Date: 20080808
  Receipt Date: 20080731
  Transmission Date: 20090109
  Serious: Yes (Other)
  Sender: FDA-Public Use
  Company Number: JP-AMGEN-US296195

PATIENT
  Age: 57 Year
  Sex: Male

DRUGS (5)
  1. ENBREL [Suspect]
     Indication: RHEUMATOID ARTHRITIS
     Dosage: UNKNOWN DOSE; LYOPHILIZED
     Route: 058
     Dates: start: 20080614
  2. ENBREL [Suspect]
     Dosage: UNKNOWN DOSE; PRE-FILLED SYRINGE
     Route: 058
     Dates: end: 20080710
  3. ADALAT [Concomitant]
  4. DIOVAN [Concomitant]
  5. ISONIAZID [Concomitant]

REACTIONS (1)
  - PROGRESSIVE MULTIFOCAL LEUKOENCEPHALOPATHY [None]
